FAERS Safety Report 15494782 (Version 2)
Quarter: 2018Q4

REPORT INFORMATION
  Report Type: Spontaneous
  Country: US (occurrence: US)
  Receive Date: 20181012
  Receipt Date: 20181108
  Transmission Date: 20190205
  Serious: Yes (Other)
  Sender: FDA-Public Use
  Company Number: PHEH2018US042318

PATIENT
  Age: 39 Year
  Sex: Female

DRUGS (1)
  1. COSENTYX [Suspect]
     Active Substance: SECUKINUMAB
     Indication: PSORIASIS
     Dosage: 300 MG, QMO
     Route: 058
     Dates: start: 201802, end: 20180410

REACTIONS (4)
  - Biliary fistula [Recovering/Resolving]
  - Eye swelling [Recovering/Resolving]
  - Injection site erythema [Recovered/Resolved]
  - Eye pruritus [Recovering/Resolving]
